FAERS Safety Report 9123943 (Version 4)
Quarter: 2013Q3

REPORT INFORMATION
  Report Type: Spontaneous
  Country: US (occurrence: US)
  Receive Date: 20130227
  Receipt Date: 20130703
  Transmission Date: 20140515
  Serious: Yes (Other)
  Sender: FDA-Public Use
  Company Number: US-ROCHE-781954

PATIENT
  Sex: Male
  Weight: 70.37 kg

DRUGS (4)
  1. ACCUTANE [Suspect]
     Indication: ACNE
     Route: 065
     Dates: start: 1998, end: 1999
  2. TYLENOL [Concomitant]
  3. IBUPROFEN [Concomitant]
  4. NAPROXEN [Concomitant]

REACTIONS (9)
  - Colitis ulcerative [Unknown]
  - Inflammatory bowel disease [Unknown]
  - Onychomycosis [Unknown]
  - Tinea pedis [Unknown]
  - Tinea cruris [Unknown]
  - Depression [Unknown]
  - Irritable bowel syndrome [Unknown]
  - Xerosis [Unknown]
  - Xerophthalmia [Unknown]
